FAERS Safety Report 26080580 (Version 1)
Quarter: 2025Q4

REPORT INFORMATION
  Report Type: Spontaneous
  Country: CA (occurrence: CA)
  Receive Date: 20251124
  Receipt Date: 20251124
  Transmission Date: 20260118
  Serious: Yes (Other)
  Sender: IDORSIA PHARMACEUTICALS
  Company Number: CA-IDORSIA-012577-2025-CA

PATIENT

DRUGS (1)
  1. QUVIVIQ [Suspect]
     Active Substance: DARIDOREXANT
     Indication: Insomnia
     Dosage: 50 MG, QD
     Route: 065

REACTIONS (9)
  - Confusional state [Unknown]
  - Cognitive disorder [Unknown]
  - Burning sensation [Unknown]
  - Insomnia [Unknown]
  - Sleep paralysis [Unknown]
  - Nightmare [Unknown]
  - Dyspnoea [Unknown]
  - Tremor [Unknown]
  - Impaired quality of life [Unknown]
